FAERS Safety Report 13771464 (Version 1)
Quarter: 2017Q3

REPORT INFORMATION
  Report Type: Spontaneous
  Country: BR (occurrence: BR)
  Receive Date: 20170720
  Receipt Date: 20170720
  Transmission Date: 20171127
  Serious: Yes (Other)
  Sender: FDA-Public Use
  Company Number: BR-ROCHE-1964674

PATIENT
  Sex: Female

DRUGS (1)
  1. MABTHERA [Suspect]
     Active Substance: RITUXIMAB
     Indication: RHEUMATOID ARTHRITIS
     Dosage: EVERY 6 MONTHS
     Route: 042

REACTIONS (6)
  - Ill-defined disorder [Unknown]
  - Myalgia [Unknown]
  - Back pain [Unknown]
  - Inflammation [Unknown]
  - Asthenia [Unknown]
  - Pain in extremity [Unknown]
